FAERS Safety Report 5707004-7 (Version None)
Quarter: 2008Q2

REPORT INFORMATION
  Report Type: 
  Country: None (occurrence: None)
  Receive Date: 20080416
  Receipt Date: 20080408
  Transmission Date: 20081010
  Serious: Yes (Hospitalization)
  Sender: FDA-Public Use
  Company Number: FR-AVENTIS-200811332FR

PATIENT
  Age: 92 Year
  Sex: Female

DRUGS (21)
  1. LASILIX                            /00032601/ [Suspect]
     Route: 048
     Dates: end: 20080127
  2. LASILIX                            /00032601/ [Suspect]
     Route: 048
     Dates: start: 20080128, end: 20080131
  3. COVERSYL                           /00790701/ [Suspect]
     Route: 048
     Dates: start: 20080129, end: 20080131
  4. ISOPTIN [Concomitant]
     Route: 048
     Dates: end: 20080203
  5. ISOPTIN [Concomitant]
     Route: 048
     Dates: start: 20080204, end: 20080204
  6. ISOPTIN [Concomitant]
     Route: 048
     Dates: start: 20080101
  7. DUPHALAC                           /00163401/ [Concomitant]
     Indication: CONSTIPATION
     Route: 048
     Dates: start: 20080127, end: 20080128
  8. DUPHALAC                           /00163401/ [Concomitant]
     Route: 048
     Dates: start: 20080129, end: 20080201
  9. DI-ANTALVIC                        /00220901/ [Concomitant]
     Route: 048
     Dates: end: 20080201
  10. KARDEGIC                           /00002703/ [Concomitant]
     Indication: PROPHYLAXIS
     Route: 048
     Dates: end: 20080128
  11. COUMADIN [Concomitant]
     Indication: ATRIAL FIBRILLATION
     Route: 048
     Dates: start: 20080127, end: 20080128
  12. COUMADIN [Concomitant]
     Route: 048
     Dates: start: 20080101
  13. COUMADIN [Concomitant]
     Route: 048
     Dates: start: 20080127, end: 20080128
  14. COUMADIN [Concomitant]
     Route: 048
     Dates: start: 20080101
  15. CALCIPARINE [Concomitant]
     Indication: DRUG USE FOR UNKNOWN INDICATION
     Route: 058
     Dates: start: 20080125
  16. LEXOMIL [Concomitant]
     Indication: DRUG USE FOR UNKNOWN INDICATION
     Route: 048
  17. INIPOMP                            /01263201/ [Concomitant]
     Indication: DRUG USE FOR UNKNOWN INDICATION
     Route: 048
  18. EPINITRIL [Concomitant]
     Indication: DRUG USE FOR UNKNOWN INDICATION
     Route: 062
  19. ALLOPURINOL [Concomitant]
     Indication: DRUG USE FOR UNKNOWN INDICATION
     Route: 048
  20. DEDROGYL [Concomitant]
     Indication: DRUG USE FOR UNKNOWN INDICATION
     Route: 048
  21. CALCIUM 500 [Concomitant]
     Indication: DRUG USE FOR UNKNOWN INDICATION
     Route: 048

REACTIONS (2)
  - DRUG INTERACTION [None]
  - RENAL FAILURE ACUTE [None]
